FAERS Safety Report 12893126 (Version 2)
Quarter: 2016Q4

REPORT INFORMATION
  Report Type: Spontaneous
  Country: BR (occurrence: BR)
  Receive Date: 20161028
  Receipt Date: 20161109
  Transmission Date: 20170207
  Serious: Yes (Hospitalization, Other)
  Sender: FDA-Public Use
  Company Number: BR-PFIZER INC-2014075925

PATIENT
  Age: 68 Year
  Sex: Male
  Weight: 85 kg

DRUGS (7)
  1. FRONTAL XR [Suspect]
     Active Substance: ALPRAZOLAM
     Indication: ANXIETY
  2. SOTALOL. [Concomitant]
     Active Substance: SOTALOL
     Indication: ARRHYTHMIA
     Dosage: UNK
  3. DIOVAN [Concomitant]
     Active Substance: VALSARTAN
     Indication: HYPERTENSION
     Dosage: UNK, 1X/DAY
  4. FRONTAL XR [Suspect]
     Active Substance: ALPRAZOLAM
     Indication: PANIC DISORDER
  5. FRONTAL XR [Suspect]
     Active Substance: ALPRAZOLAM
     Indication: TENSION
  6. FRONTAL XR [Suspect]
     Active Substance: ALPRAZOLAM
     Indication: DEPRESSION
  7. FRONTAL XR [Suspect]
     Active Substance: ALPRAZOLAM
     Indication: PANIC ATTACK
     Dosage: 1 TABLET 2MG IN THE MORNING, 1 TABLET 2MG AT NIGHT
     Route: 048
     Dates: start: 2005, end: 201610

REACTIONS (20)
  - Seizure [Not Recovered/Not Resolved]
  - Dizziness [Not Recovered/Not Resolved]
  - Disorientation [Not Recovered/Not Resolved]
  - Retching [Not Recovered/Not Resolved]
  - Cerebrovascular accident [Recovered/Resolved]
  - Prostate cancer [Not Recovered/Not Resolved]
  - Head discomfort [Not Recovered/Not Resolved]
  - Irritability [Not Recovered/Not Resolved]
  - Hypoacusis [Not Recovered/Not Resolved]
  - Drug dependence [Not Recovered/Not Resolved]
  - Malaise [Not Recovered/Not Resolved]
  - Pain [Not Recovered/Not Resolved]
  - Emotional disorder [Not Recovered/Not Resolved]
  - Gait disturbance [Not Recovered/Not Resolved]
  - Blood pressure increased [Not Recovered/Not Resolved]
  - Feeling abnormal [Not Recovered/Not Resolved]
  - Cerebral disorder [Not Recovered/Not Resolved]
  - Fall [Recovered/Resolved]
  - Craniocerebral injury [Recovered/Resolved]
  - Vision blurred [Not Recovered/Not Resolved]

NARRATIVE: CASE EVENT DATE: 2005
